FAERS Safety Report 9340952 (Version 1)
Quarter: 2013Q2

REPORT INFORMATION
  Report Type: Spontaneous
  Country: GB (occurrence: GB)
  Receive Date: 20130610
  Receipt Date: 20130610
  Transmission Date: 20140414
  Serious: Yes (Life-Threatening, Other)
  Sender: FDA-Public Use
  Company Number: GB-B.I. PHARMACEUTICALS,INC./RIDGEFIELD-2013-UK-01228UK

PATIENT
  Age: 82 Year
  Sex: Female

DRUGS (4)
  1. PRADAXA [Suspect]
     Indication: ATRIAL FIBRILLATION
     Dosage: 220 MG
     Route: 048
     Dates: start: 20130523, end: 20130524
  2. ATORVASTATIN [Concomitant]
  3. CO-AMOXICLAV [Concomitant]
  4. TEMAZEPAM [Concomitant]

REACTIONS (2)
  - Cerebral haemorrhage [Not Recovered/Not Resolved]
  - Coma scale abnormal [Unknown]
